FAERS Safety Report 4737184-1 (Version None)
Quarter: 2005Q3

REPORT INFORMATION
  Report Type: 
  Country: None (occurrence: None)
  Receive Date: 20050808
  Receipt Date: 20050630
  Transmission Date: 20060218
  Serious: Yes (Hospitalization, Disabling)
  Sender: FDA-Public Use
  Company Number: US-MERCK-0507USA00169

PATIENT
  Age: 66 Year
  Sex: Male
  Weight: 105 kg

DRUGS (11)
  1. VIOXX [Suspect]
     Indication: ARTHRALGIA
     Route: 048
     Dates: start: 20001201, end: 20040801
  2. VIOXX [Suspect]
     Route: 048
     Dates: start: 20001201, end: 20040801
  3. METFORMIN [Concomitant]
     Route: 065
  4. POTASSIUM (UNSPECIFIED) [Concomitant]
     Route: 065
  5. COUMADIN [Concomitant]
     Route: 065
  6. LASIX [Concomitant]
     Route: 065
  7. LIPITOR [Concomitant]
     Route: 065
  8. DIABETA [Concomitant]
     Route: 065
  9. LANOXIN [Concomitant]
     Route: 065
  10. ALTACE [Concomitant]
     Route: 065
  11. ZAROXOLYN [Concomitant]
     Route: 065

REACTIONS (6)
  - CEREBROVASCULAR ACCIDENT [None]
  - CHOLELITHIASIS [None]
  - DEPRESSION [None]
  - PNEUMONIA [None]
  - PRESCRIBED OVERDOSE [None]
  - VERTIGO [None]
